FAERS Safety Report 14832414 (Version 1)
Quarter: 2018Q2

REPORT INFORMATION
  Report Type: Spontaneous
  Country: US (occurrence: US)
  Receive Date: 20180418
  Receipt Date: 20180418
  Transmission Date: 20180711
  Serious: Yes (Hospitalization)
  Sender: FDA-Public Use
  Company Number: None

PATIENT
  Age: 62 Year
  Sex: Male

DRUGS (2)
  1. FLONASE ALGY SPR [Concomitant]
  2. CAPECITABINE. [Suspect]
     Active Substance: CAPECITABINE
     Indication: COLON CANCER
     Dosage: ?          OTHER FREQUENCY:14 DAYS SUPPLY;?
     Route: 048
     Dates: start: 20180418

REACTIONS (1)
  - Infection [None]

NARRATIVE: CASE EVENT DATE: 20180401
